APPROVED DRUG PRODUCT: CEFAZOLIN IN DEXTROSE
Active Ingredient: CEFAZOLIN SODIUM
Strength: EQ 3GM BASE/150ML (EQ 20MG BASE/ML)
Dosage Form/Route: SOLUTION;INTRAVENOUS
Application: N207131 | Product #003
Applicant: BAXTER HEALTHCARE CORP
Approved: May 31, 2024 | RLD: Yes | RS: Yes | Type: RX